FAERS Safety Report 6976875-9 (Version None)
Quarter: 2010Q3

REPORT INFORMATION
  Report Type: 
  Country: None (occurrence: None)
  Receive Date: 20100910
  Receipt Date: 20100901
  Transmission Date: 20110219
  Serious: Yes (Other)
  Sender: FDA-Public Use
  Company Number: B0672640A

PATIENT
  Age: 84 Year
  Sex: Male
  Weight: 70 kg

DRUGS (10)
  1. ARIXTRA [Suspect]
     Indication: PRODUCT USED FOR UNKNOWN INDICATION
     Route: 058
     Dates: start: 20100623, end: 20100705
  2. XANAX [Suspect]
     Indication: PRODUCT USED FOR UNKNOWN INDICATION
     Dosage: .25MG TWICE PER DAY
     Route: 048
     Dates: end: 20100705
  3. LASIX [Concomitant]
     Route: 065
  4. DIGITALINE NATIVELLE [Concomitant]
     Route: 065
  5. LOVENOX [Concomitant]
     Route: 065
  6. TRIATEC [Concomitant]
     Route: 065
  7. FORLAX [Concomitant]
     Route: 065
  8. CRESTOR [Concomitant]
     Route: 065
  9. BRICANYL [Concomitant]
     Route: 065
  10. CORDARONE [Concomitant]
     Route: 065

REACTIONS (2)
  - CHOLESTASIS [None]
  - HEPATOCELLULAR INJURY [None]
